FAERS Safety Report 17514166 (Version 1)
Quarter: 2020Q1

REPORT INFORMATION
  Report Type: Spontaneous
  Country: DE (occurrence: DE)
  Receive Date: 20200306
  Receipt Date: 20200306
  Transmission Date: 20200409
  Serious: Yes (Other)
  Sender: FDA-Public Use
  Company Number: DE-AUROBINDO-AUR-APL-2020-010847

PATIENT
  Sex: Female

DRUGS (3)
  1. IBUFLAM [Concomitant]
     Indication: PRODUCT USED FOR UNKNOWN INDICATION
     Dosage: 300 MILLIGRAM, ONCE A DAY (CONCENTRATION: 800 UNIT NOT SPCEIFIED)
     Route: 065
     Dates: start: 2014
  2. NOVAMINSULFON [Concomitant]
     Active Substance: METAMIZOLE
     Indication: PRODUCT USED FOR UNKNOWN INDICATION
     Dosage: UNK
     Route: 065
     Dates: start: 2015, end: 2015
  3. VALSARTAN. [Suspect]
     Active Substance: VALSARTAN
     Indication: PRODUCT USED FOR UNKNOWN INDICATION
     Dosage: 320 MILLIGRAM, ONCE A DAY
     Route: 065
     Dates: start: 2008, end: 201812

REACTIONS (7)
  - Asthma [Unknown]
  - Emotional distress [Unknown]
  - Type 2 diabetes mellitus [Unknown]
  - Osteoarthritis [Unknown]
  - Arthritis [Unknown]
  - Dyspnoea [Unknown]
  - Neurodermatitis [Unknown]

NARRATIVE: CASE EVENT DATE: 2012
